FAERS Safety Report 24138250 (Version 2)
Quarter: 2024Q3

REPORT INFORMATION
  Report Type: Spontaneous
  Country: IT (occurrence: IT)
  Receive Date: 20240725
  Receipt Date: 20240731
  Transmission Date: 20241017
  Serious: Yes (Death, Other)
  Sender: GILEAD
  Company Number: IT-GILEAD-2024-0681843

PATIENT
  Age: 53 Year
  Sex: Male

DRUGS (1)
  1. YESCARTA [Suspect]
     Active Substance: AXICABTAGENE CILOLEUCEL
     Indication: Product used for unknown indication
     Dosage: UNK
     Route: 042
     Dates: start: 20240703, end: 20240703

REACTIONS (3)
  - Death [Fatal]
  - Nervous system disorder [Unknown]
  - Infection [Unknown]

NARRATIVE: CASE EVENT DATE: 20240724
